FAERS Safety Report 19481285 (Version 1)
Quarter: 2021Q3

REPORT INFORMATION
  Report Type: Spontaneous
  Country: CA (occurrence: CA)
  Receive Date: 20210701
  Receipt Date: 20210701
  Transmission Date: 20211014
  Serious: Yes (Hospitalization)
  Sender: FDA-Public Use
  Company Number: CA-ROCHE-2858995

PATIENT
  Age: 69 Year
  Sex: Female

DRUGS (23)
  1. ACETAMINOPHEN. [Concomitant]
     Active Substance: ACETAMINOPHEN
     Indication: PREMEDICATION
     Route: 048
  2. NIFEDIPINE. [Concomitant]
     Active Substance: NIFEDIPINE
  3. RITUXIMAB. [Suspect]
     Active Substance: RITUXIMAB
     Indication: VASCULITIS
     Route: 042
  4. LANTUS [Concomitant]
     Active Substance: INSULIN GLARGINE
  5. LEVEMIR [Concomitant]
     Active Substance: INSULIN DETEMIR
  6. METHYLPREDNISOLONE. [Concomitant]
     Active Substance: METHYLPREDNISOLONE
     Indication: PREMEDICATION
     Route: 042
  7. RITUXIMAB. [Suspect]
     Active Substance: RITUXIMAB
     Indication: GRANULOMA
     Route: 042
  8. NOVORAPID [Concomitant]
     Active Substance: INSULIN ASPART
  9. SYNTHROID [Concomitant]
     Active Substance: LEVOTHYROXINE SODIUM
  10. CALCIUM [Concomitant]
     Active Substance: CALCIUM
  11. CYCLOPHOSPHAMIDE. [Concomitant]
     Active Substance: CYCLOPHOSPHAMIDE
  12. MELATONIN [Concomitant]
     Active Substance: MELATONIN
  13. PANTOPRAZOLE [Concomitant]
     Active Substance: PANTOPRAZOLE
  14. RISEDRONATE SODIUM. [Concomitant]
     Active Substance: RISEDRONATE SODIUM
  15. RITUXIMAB. [Suspect]
     Active Substance: RITUXIMAB
     Indication: VASCULITIS
     Route: 041
  16. RITUXIMAB. [Suspect]
     Active Substance: RITUXIMAB
     Route: 065
  17. PERINDOPRIL [Concomitant]
     Active Substance: PERINDOPRIL
  18. DIPHENHYDRAMINE. [Concomitant]
     Active Substance: DIPHENHYDRAMINE
     Indication: PREMEDICATION
     Route: 048
  19. FERROUS FUMARATE [Concomitant]
     Active Substance: FERROUS FUMARATE
  20. INDAPAMIDE. [Concomitant]
     Active Substance: INDAPAMIDE
  21. INSULIN [Concomitant]
     Active Substance: INSULIN NOS
     Route: 048
  22. PREDNISONE. [Concomitant]
     Active Substance: PREDNISONE
  23. SEPTRA [Concomitant]
     Active Substance: SULFAMETHOXAZOLE\TRIMETHOPRIM

REACTIONS (2)
  - Abdominal pain [Unknown]
  - Intestinal mass [Unknown]
